FAERS Safety Report 6912343-8 (Version None)
Quarter: 2010Q3

REPORT INFORMATION
  Report Type: 
  Country: None (occurrence: None)
  Receive Date: 20100806
  Receipt Date: 20100730
  Transmission Date: 20110219
  Serious: No
  Sender: FDA-Public Use
  Company Number: JP-MERCK-1007USA03654

PATIENT
  Age: 65 Year
  Sex: Male

DRUGS (2)
  1. COZAAR [Suspect]
     Dosage: DAILY DOSAGE UNKNOWN
     Route: 048
  2. VISICLEAR [Suspect]
     Indication: ENDOSCOPY LARGE BOWEL
     Dosage: DAILY DOSAGE UNKNOWN
     Route: 048

REACTIONS (1)
  - ACUTE PHOSPHATE NEPHROPATHY [None]
